FAERS Safety Report 26157898 (Version 1)
Quarter: 2025Q4

REPORT INFORMATION
  Report Type: Spontaneous
  Country: EU (occurrence: EU)
  Receive Date: 20251215
  Receipt Date: 20251215
  Transmission Date: 20260119
  Serious: Yes (Hospitalization)
  Sender: MYLAN
  Company Number: None

PATIENT
  Age: 75 Year
  Sex: Male

DRUGS (4)
  1. GABAPENTIN [Suspect]
     Active Substance: GABAPENTIN
     Indication: Neuralgia
     Dosage: 1.6 GRAM, QD
     Dates: start: 202407, end: 20250316
  2. GABAPENTIN [Suspect]
     Active Substance: GABAPENTIN
     Dosage: 2.4 GRAM, QD
     Dates: start: 20250317, end: 20250324
  3. GABAPENTIN [Suspect]
     Active Substance: GABAPENTIN
     Dosage: 3 GRAM, QD
     Dates: start: 20250325, end: 20250327
  4. GABAPENTIN [Suspect]
     Active Substance: GABAPENTIN
     Dosage: 3.6 GRAM, QD
     Dates: start: 20250328, end: 20251127

REACTIONS (1)
  - Pancreatitis acute [Recovering/Resolving]

NARRATIVE: CASE EVENT DATE: 20251125
